FAERS Safety Report 17396108 (Version 1)
Quarter: 2020Q1

REPORT INFORMATION
  Report Type: Spontaneous
  Country: HU (occurrence: HU)
  Receive Date: 20200210
  Receipt Date: 20200210
  Transmission Date: 20200409
  Serious: Yes (Other)
  Sender: FDA-Public Use
  Company Number: NVSC2020HU029045

PATIENT

DRUGS (2)
  1. AMOXICILLIN AND CLAVULANATE POTASSIUM [Suspect]
     Active Substance: AMOXICILLIN\CLAVULANATE POTASSIUM
     Indication: PRODUCT USED FOR UNKNOWN INDICATION
     Dosage: UNK
     Route: 065
  2. CEFTRIAXONE. [Suspect]
     Active Substance: CEFTRIAXONE
     Indication: PRODUCT USED FOR UNKNOWN INDICATION
     Dosage: UNK
     Route: 065

REACTIONS (8)
  - Staphylococcus test positive [Unknown]
  - Pyrexia [Unknown]
  - Pneumonia klebsiella [Unknown]
  - Candida infection [Unknown]
  - Sepsis [Unknown]
  - Multiple-drug resistance [Unknown]
  - Klebsiella test positive [Unknown]
  - Enterococcus test positive [Unknown]
